FAERS Safety Report 6638155-0 (Version None)
Quarter: 2010Q1

REPORT INFORMATION
  Report Type: 
  Country: None (occurrence: None)
  Receive Date: 20100301
  Receipt Date: 20090717
  Transmission Date: 20100710
  Serious: Yes (Other)
  Sender: FDA-Public Use
  Company Number: ALA_00331_2009

PATIENT
  Age: 33 Year
  Sex: Male

DRUGS (3)
  1. REGLAN [Suspect]
     Indication: DYSPEPSIA
     Dosage: 30 MG QD ORAL; 6 YEARS
     Route: 048
     Dates: end: 20090601
  2. REGLAN [Suspect]
     Indication: NERVOUS SYSTEM DISORDER
     Dosage: 30 MG QD ORAL; 6 YEARS
     Route: 048
     Dates: end: 20090601
  3. REGLAN [Suspect]
     Indication: TREMOR
     Dosage: 30 MG QD ORAL; 6 YEARS
     Route: 048
     Dates: end: 20090601

REACTIONS (1)
  - TARDIVE DYSKINESIA [None]
